FAERS Safety Report 12652833 (Version 2)
Quarter: 2016Q3

REPORT INFORMATION
  Report Type: Report from Study
  Country: CN (occurrence: CN)
  Receive Date: 20160815
  Receipt Date: 20160902
  Transmission Date: 20161109
  Serious: Yes (Death)
  Sender: FDA-Public Use
  Company Number: PHHY2016CN111495

PATIENT
  Sex: Female

DRUGS (2)
  1. MEROPENEM. [Concomitant]
     Active Substance: MEROPENEM
     Indication: PRODUCT USED FOR UNKNOWN INDICATION
     Dosage: UNK
     Route: 065
  2. TASIGNA [Suspect]
     Active Substance: NILOTINIB
     Indication: BLAST CRISIS IN MYELOGENOUS LEUKAEMIA
     Dosage: 800 MG, QD (ONCE DAILY)
     Route: 048
     Dates: start: 20160703, end: 201608

REACTIONS (2)
  - Pneumonia [Fatal]
  - Septic shock [Fatal]
